FAERS Safety Report 8199144-0 (Version None)
Quarter: 2012Q1

REPORT INFORMATION
  Report Type: 
  Country: None (occurrence: None)
  Receive Date: 20120309
  Receipt Date: 20120228
  Transmission Date: 20120608
  Serious: Yes (Hospitalization, Other)
  Sender: FDA-Public Use
  Company Number: ES-JHP PHARMACEUTICALS, LLC-JHP201200145

PATIENT
  Age: 28 Year
  Sex: Female

DRUGS (9)
  1. ANTIINFLAMMATORY AGENTS [Concomitant]
  2. GABAPENTIN [Concomitant]
  3. STEROIDS [Concomitant]
  4. METHADON HCL TAB [Concomitant]
  5. ACETAMINOPHEN [Concomitant]
  6. BACLOFEN [Concomitant]
  7. KETALAR [Suspect]
     Indication: PAIN
  8. VENLAFAXINE [Concomitant]
  9. DIAZEPAM [Concomitant]

REACTIONS (3)
  - DRUG INEFFECTIVE [None]
  - OFF LABEL USE [None]
  - TOXICITY TO VARIOUS AGENTS [None]
